FAERS Safety Report 8589165-8 (Version None)
Quarter: 2012Q3

REPORT INFORMATION
  Report Type: 
  Country: None (occurrence: None)
  Receive Date: 20120813
  Receipt Date: 20120808
  Transmission Date: 20120928
  Serious: No
  Sender: FDA-Public Use
  Company Number: US-PFIZER INC-2012193719

PATIENT
  Age: 25 Year
  Sex: Female
  Weight: 65.76 kg

DRUGS (1)
  1. PEDIATRIC ADVIL [Suspect]
     Dosage: UNK, ONCE A DAY
     Route: 048
     Dates: start: 20120807, end: 20120807

REACTIONS (3)
  - GLOSSODYNIA [None]
  - DRUG ADMINISTERED TO PATIENT OF INAPPROPRIATE AGE [None]
  - THROAT IRRITATION [None]
